FAERS Safety Report 13111744 (Version 2)
Quarter: 2017Q1

REPORT INFORMATION
  Report Type: Spontaneous
  Country: JP (occurrence: JP)
  Receive Date: 20170113
  Receipt Date: 20170126
  Transmission Date: 20170428
  Serious: Yes (Life-Threatening, Disabling, Other)
  Sender: FDA-Public Use
  Company Number: JP-ROCHE-1878524

PATIENT
  Age: 91 Year
  Sex: Female
  Weight: 46 kg

DRUGS (13)
  1. ZOLPIDEM TARTRATE. [Concomitant]
     Active Substance: ZOLPIDEM TARTRATE
     Route: 048
     Dates: end: 20161227
  2. MIYA-BM [Concomitant]
     Active Substance: CLOSTRIDIUM BUTYRICUM SPORES STRAIN M-55
     Route: 048
     Dates: start: 20161214, end: 20161227
  3. REBAMIPIDE [Concomitant]
     Active Substance: REBAMIPIDE
     Route: 048
     Dates: start: 20161214, end: 20161227
  4. COLCHICINE. [Concomitant]
     Active Substance: COLCHICINE
     Route: 048
     Dates: start: 201611, end: 20161227
  5. QUETIAPINE. [Concomitant]
     Active Substance: QUETIAPINE
     Route: 048
     Dates: end: 20161227
  6. NEXIUM [Concomitant]
     Active Substance: ESOMEPRAZOLE MAGNESIUM
     Route: 048
     Dates: start: 201611, end: 20161227
  7. JZOLOFT [Concomitant]
     Active Substance: SERTRALINE HYDROCHLORIDE
     Route: 048
     Dates: start: 20161214, end: 20161227
  8. AMLODIPINE [Concomitant]
     Active Substance: AMLODIPINE BESYLATE
     Route: 048
     Dates: end: 20161227
  9. FLUITRAN [Concomitant]
     Active Substance: TRICHLORMETHIAZIDE
     Route: 048
     Dates: end: 20161227
  10. DONEPEZIL HYDROCHLORIDE. [Concomitant]
     Active Substance: DONEPEZIL HYDROCHLORIDE
     Route: 048
     Dates: end: 20161227
  11. FERROUS CITRATE [Concomitant]
     Active Substance: FERROUS CITRATE
     Dosage: REPORTED AS FERROUS CITRATE NA
     Route: 048
     Dates: start: 20161217, end: 20161227
  12. TAMIFLU [Suspect]
     Active Substance: OSELTAMIVIR PHOSPHATE
     Indication: ANTIVIRAL PROPHYLAXIS
     Route: 048
     Dates: start: 20161226, end: 20161227
  13. CANDESARTAN [Concomitant]
     Active Substance: CANDESARTAN
     Dosage: CANDESARTAN OD
     Route: 048
     Dates: end: 20161227

REACTIONS (11)
  - Loss of consciousness [Recovered/Resolved]
  - Shock [Recovered/Resolved]
  - Clonic convulsion [Recovered/Resolved with Sequelae]
  - Oxygen saturation decreased [Unknown]
  - Cold sweat [Unknown]
  - Dysphagia [Recovered/Resolved with Sequelae]
  - Abnormal behaviour [Unknown]
  - Pyrexia [Unknown]
  - Tremor [Unknown]
  - Epistaxis [Unknown]
  - Blood pressure decreased [Recovered/Resolved]

NARRATIVE: CASE EVENT DATE: 20161227
